FAERS Safety Report 7784291-5 (Version None)
Quarter: 2011Q3

REPORT INFORMATION
  Report Type: 
  Country: None (occurrence: None)
  Receive Date: 20110928
  Receipt Date: 20110919
  Transmission Date: 20111222
  Serious: Yes (Other)
  Sender: FDA-Public Use
  Company Number: IT-ELI_LILLY_AND_COMPANY-IT201109006143

PATIENT
  Sex: Male

DRUGS (2)
  1. EFFIENT [Suspect]
     Dosage: 60 MG, QD
  2. HEPARIN [Concomitant]

REACTIONS (1)
  - CEREBELLAR ISCHAEMIA [None]
